FAERS Safety Report 17076411 (Version 1)
Quarter: 2019Q4

REPORT INFORMATION
  Report Type: Spontaneous
  Country: PL (occurrence: PL)
  Receive Date: 20191126
  Receipt Date: 20191126
  Transmission Date: 20200122
  Serious: Yes (Other)
  Sender: FDA-Public Use
  Company Number: PL-SEATTLE GENETICS-2019SGN04317

PATIENT
  Age: 46 Year
  Sex: Female

DRUGS (1)
  1. ADCETRIS [Suspect]
     Active Substance: BRENTUXIMAB VEDOTIN
     Indication: ANAPLASTIC LARGE-CELL LYMPHOMA
     Dosage: UNK
     Route: 042

REACTIONS (4)
  - Lymphoedema [Unknown]
  - Polyneuropathy [Not Recovered/Not Resolved]
  - Deep vein thrombosis [Unknown]
  - Neutropenia [Unknown]
